FAERS Safety Report 5929177-3 (Version None)
Quarter: 2008Q4

REPORT INFORMATION
  Report Type: 
  Country: None (occurrence: None)
  Receive Date: 20081023
  Receipt Date: 20081023
  Transmission Date: 20090506
  Serious: Yes (Hospitalization)
  Sender: FDA-Public Use
  Company Number: None

PATIENT
  Sex: Female
  Weight: 53 kg

DRUGS (1)
  1. DIGOXIN [Suspect]
     Indication: CARDIAC FAILURE CONGESTIVE
     Dosage: 0.25 MG DAILY PO
     Route: 048

REACTIONS (4)
  - ABDOMINAL PAIN UPPER [None]
  - ASTHENIA [None]
  - NAUSEA [None]
  - VOMITING [None]
